FAERS Safety Report 6399167-8 (Version None)
Quarter: 2009Q4

REPORT INFORMATION
  Report Type: 
  Country: None (occurrence: None)
  Receive Date: 20091008
  Receipt Date: 20090925
  Transmission Date: 20100525
  Serious: Yes (Hospitalization)
  Sender: FDA-Public Use
  Company Number: 2009-00618

PATIENT
  Age: 63 Year
  Sex: Male
  Weight: 85 kg

DRUGS (16)
  1. VELCADE [Suspect]
     Indication: MULTIPLE MYELOMA
     Dosage: 1.3 MG/M2, INTRAVENOUS
     Route: 042
     Dates: start: 20081216, end: 20090206
  2. DEXAMETHASONE TAB [Suspect]
     Indication: MULTIPLE MYELOMA
     Dosage: 40 MG, ORAL ; 40 MG, ORAL
     Route: 048
     Dates: start: 20081216, end: 20090106
  3. DEXAMETHASONE TAB [Suspect]
     Indication: MULTIPLE MYELOMA
     Dosage: 40 MG, ORAL ; 40 MG, ORAL
     Route: 048
     Dates: start: 20090114, end: 20090227
  4. METFORMIN HCL [Concomitant]
  5. PERINDOPRIL ERBUMINE [Concomitant]
  6. SIMVASTATIN [Concomitant]
  7. DILTIAZEM HCL [Concomitant]
  8. ACETYLSALICYLIC ACID SRT [Concomitant]
  9. PROTHIPENDYL (PROTHIPENDYL) [Concomitant]
  10. INSULIN (INSULIN) [Concomitant]
  11. INSULATARD NPH HUMAN [Concomitant]
  12. ALDACTONE [Concomitant]
  13. DILTIAZEM HYDROCHLORIDE [Concomitant]
  14. ACYCLOVIR [Concomitant]
  15. BACTRIM DS [Concomitant]
  16. RIOPAN (MAGALDRATE) [Concomitant]

REACTIONS (6)
  - ABDOMINAL PAIN UPPER [None]
  - DUODENAL ULCER [None]
  - EROSIVE DUODENITIS [None]
  - GASTRITIS EROSIVE [None]
  - MELAENA [None]
  - OESOPHAGITIS [None]
